FAERS Safety Report 23510765 (Version 2)
Quarter: 2024Q1

REPORT INFORMATION
  Report Type: Report from Study
  Country: US (occurrence: US)
  Receive Date: 20240212
  Receipt Date: 20240215
  Transmission Date: 20240409
  Serious: Yes (Other)
  Sender: FDA-Public Use
  Company Number: US-TAKEDA-ALL1-2013-04174

PATIENT
  Age: 1 Year
  Sex: Male

DRUGS (2)
  1. IDURSULFASE [Suspect]
     Active Substance: IDURSULFASE
     Indication: Mucopolysaccharidosis II
     Dosage: 6 MILLIGRAM, 1/WEEK
     Route: 041
     Dates: start: 20121207
  2. IDURSULFASE [Suspect]
     Active Substance: IDURSULFASE
     Dosage: 34 MILLIGRAM, 1/WEEK
     Route: 042
     Dates: start: 202106

REACTIONS (3)
  - Head injury [Unknown]
  - Weight increased [Unknown]
  - Fall [Recovered/Resolved]

NARRATIVE: CASE EVENT DATE: 20130616
